FAERS Safety Report 16289204 (Version 1)
Quarter: 2019Q2

REPORT INFORMATION
  Report Type: Other
  Country: TR (occurrence: TR)
  Receive Date: 20190509
  Receipt Date: 20190509
  Transmission Date: 20190711
  Serious: Yes (Hospitalization)
  Sender: FDA-Public Use
  Company Number: TR-ALLIED PHARMA, LLC-2066829

PATIENT
  Age: 46 Year
  Sex: Male

DRUGS (1)
  1. CETIRIZINE HYDROCHLORIDE ORAL SOLUTION, 1 MG/ML [Suspect]
     Active Substance: CETIRIZINE HYDROCHLORIDE
     Indication: DERMATITIS CONTACT
     Route: 065

REACTIONS (1)
  - Drug-induced liver injury [Recovered/Resolved]
